FAERS Safety Report 12880171 (Version 1)
Quarter: 2016Q4

REPORT INFORMATION
  Report Type: Spontaneous
  Country: US (occurrence: US)
  Receive Date: 20161021
  Receipt Date: 20161021
  Transmission Date: 20170207
  Serious: No
  Sender: FDA-Public Use
  Company Number: None

PATIENT
  Age: 80 Year
  Sex: Female

DRUGS (1)
  1. TIKOSYN [Suspect]
     Active Substance: DOFETILIDE
     Indication: ATRIAL FIBRILLATION
     Route: 048
     Dates: start: 20140926, end: 20160929

REACTIONS (7)
  - Pain in extremity [None]
  - Drug dose omission [None]
  - Headache [None]
  - Therapy cessation [None]
  - Personality change [None]
  - Asthenia [None]
  - Insomnia [None]

NARRATIVE: CASE EVENT DATE: 20160929
